FAERS Safety Report 10638519 (Version 16)
Quarter: 2015Q2

REPORT INFORMATION
  Report Type: Report from Study
  Country: DE (occurrence: DE)
  Receive Date: 20141208
  Receipt Date: 20150605
  Transmission Date: 20150821
  Serious: Yes (Hospitalization, Other)
  Sender: FDA-Public Use
  Company Number: DE-SA-2014SA146161

PATIENT
  Age: 34 Year
  Sex: Female

DRUGS (2)
  1. AUBAGIO [Suspect]
     Active Substance: TERIFLUNOMIDE
     Indication: MULTIPLE SCLEROSIS
     Route: 048
     Dates: start: 20141020, end: 20150317
  2. AUBAGIO [Suspect]
     Active Substance: TERIFLUNOMIDE
     Indication: MULTIPLE SCLEROSIS
     Route: 048
     Dates: start: 20150319

REACTIONS (35)
  - Dizziness [Not Recovered/Not Resolved]
  - Nasopharyngitis [Recovered/Resolved]
  - Headache [Recovered/Resolved]
  - Eye swelling [Not Recovered/Not Resolved]
  - Decreased appetite [Not Recovered/Not Resolved]
  - Tooth extraction [Unknown]
  - Stress [Unknown]
  - Alopecia [Not Recovered/Not Resolved]
  - Swelling face [Not Recovered/Not Resolved]
  - Abdominal pain lower [Unknown]
  - Blood pressure decreased [Not Recovered/Not Resolved]
  - Blepharospasm [Not Recovered/Not Resolved]
  - Abdominal pain upper [Recovering/Resolving]
  - Pain [Not Recovered/Not Resolved]
  - Paraesthesia [Not Recovered/Not Resolved]
  - Osteitis [Unknown]
  - Pulpitis dental [Not Recovered/Not Resolved]
  - Paraesthesia [Unknown]
  - Nausea [Not Recovered/Not Resolved]
  - Visual acuity reduced [Recovering/Resolving]
  - Multiple sclerosis relapse [Recovering/Resolving]
  - Diplopia [Not Recovered/Not Resolved]
  - Conjunctivitis [Recovered/Resolved]
  - Muscle spasms [Unknown]
  - Pain in jaw [Not Recovered/Not Resolved]
  - Dyspepsia [Not Recovered/Not Resolved]
  - Liver function test abnormal [Not Recovered/Not Resolved]
  - Nuclear magnetic resonance imaging abnormal [Unknown]
  - Vomiting [Not Recovered/Not Resolved]
  - Balance disorder [Unknown]
  - Eye pain [Not Recovered/Not Resolved]
  - Pyrexia [Recovering/Resolving]
  - Gastrointestinal sounds abnormal [Recovering/Resolving]
  - Limb discomfort [Not Recovered/Not Resolved]
  - Drug dose omission [Unknown]

NARRATIVE: CASE EVENT DATE: 2013
